FAERS Safety Report 19114255 (Version 7)
Quarter: 2021Q3

REPORT INFORMATION
  Report Type: Spontaneous
  Country: BE (occurrence: BE)
  Receive Date: 20210408
  Receipt Date: 20210902
  Transmission Date: 20211014
  Serious: Yes (Death, Life-Threatening, Hospitalization)
  Sender: FDA-Public Use
  Company Number: BE-CELGENEUS-BEL-20210304547

PATIENT
  Age: 63 Year
  Sex: Female
  Weight: 58 kg

DRUGS (14)
  1. LYRICA [Concomitant]
     Active Substance: PREGABALIN
     Indication: PARAESTHESIA
     Dosage: 150 MILLIGRAM
     Route: 048
     Dates: start: 20210112, end: 202102
  2. IMODIUM [Concomitant]
     Active Substance: LOPERAMIDE HYDROCHLORIDE
     Indication: DIARRHOEA
     Dosage: 2 MILLIGRAM
     Route: 048
     Dates: start: 20210314, end: 20210314
  3. BURINEX [Concomitant]
     Active Substance: BUMETANIDE
     Indication: FLUID RETENTION
     Dosage: 6.75 MILLIGRAM
     Route: 041
     Dates: start: 20210126, end: 20210308
  4. PLACEBO [Suspect]
     Active Substance: UNSPECIFIED INGREDIENT
     Indication: MYELODYSPLASTIC SYNDROME
     Route: 048
     Dates: start: 20210208, end: 20210221
  5. MOVICOL [Concomitant]
     Active Substance: POLYETHYLENE GLYCOL 3350\POTASSIUM CHLORIDE\SODIUM BICARBONATE\SODIUM CHLORIDE
     Dosage: 1 DAY
     Route: 048
     Dates: start: 20210309, end: 20210310
  6. TRADONAL ODIS [Concomitant]
     Indication: HEADACHE
     Route: 048
     Dates: start: 20210126, end: 20210308
  7. ARANESP [Concomitant]
     Active Substance: DARBEPOETIN ALFA
     Indication: ANAEMIA
     Dosage: 500 MICROGRAM
     Route: 058
     Dates: start: 20210208, end: 20210308
  8. AZACITIDINE. [Suspect]
     Active Substance: AZACITIDINE
     Indication: MYELODYSPLASTIC SYNDROME
     Dosage: 75 MILLIGRAM/SQ. METER
     Route: 058
     Dates: start: 20210208, end: 20210216
  9. PARACETAMOL [Concomitant]
     Active Substance: ACETAMINOPHEN
     Indication: PYREXIA
     Route: 065
     Dates: start: 202102
  10. TEMESTA [Concomitant]
     Indication: INSOMNIA
     Dosage: 2.5 MILLIGRAM
     Route: 048
     Dates: start: 20210308, end: 20210310
  11. LYRICA [Concomitant]
     Active Substance: PREGABALIN
     Dosage: 300 MILLIGRAM
     Route: 048
     Dates: start: 202102, end: 20210317
  12. CLEXANE [Concomitant]
     Active Substance: ENOXAPARIN SODIUM
     Indication: THROMBOSIS
     Dosage: 40 MILLIGRAM
     Route: 058
     Dates: start: 20210309, end: 20210313
  13. PARACETAMOL [Concomitant]
     Active Substance: ACETAMINOPHEN
     Indication: HEADACHE
  14. MOVICOL [Concomitant]
     Active Substance: POLYETHYLENE GLYCOL 3350\POTASSIUM CHLORIDE\SODIUM BICARBONATE\SODIUM CHLORIDE
     Indication: CONSTIPATION
     Dosage: 1 SACHET AS REQUIRED
     Route: 048
     Dates: start: 202102, end: 20210222

REACTIONS (7)
  - Multiple organ dysfunction syndrome [Fatal]
  - Septic shock [Recovered/Resolved]
  - Pneumonia [Unknown]
  - Pneumonia [Unknown]
  - Septic shock [Recovered/Resolved]
  - Septic shock [Unknown]
  - Joint swelling [Unknown]

NARRATIVE: CASE EVENT DATE: 20210308
